FAERS Safety Report 7682522-3 (Version None)
Quarter: 2011Q3

REPORT INFORMATION
  Report Type: 
  Country: None (occurrence: None)
  Receive Date: 20110810
  Receipt Date: 20110804
  Transmission Date: 20111222
  Serious: Yes (Other)
  Sender: FDA-Public Use
  Company Number: ERP11000019

PATIENT
  Age: 81 Year
  Sex: Female

DRUGS (1)
  1. ACTOKIT (RISEDRONATE SODIUM 35 MG, CALCIUM CARBONATE 1250 MG) TABLET, [Suspect]
     Dosage: 35 MG, CYCLIC 1/D, ORAL
     Route: 048
     Dates: start: 20110802

REACTIONS (3)
  - SWELLING [None]
  - DIZZINESS [None]
  - ACCIDENTAL OVERDOSE [None]
